FAERS Safety Report 5425358-6 (Version None)
Quarter: 2007Q3

REPORT INFORMATION
  Report Type: 
  Country: None (occurrence: None)
  Receive Date: 20070824
  Receipt Date: 20070814
  Transmission Date: 20080115
  Serious: Yes (Death, Other)
  Sender: FDA-Public Use
  Company Number: US-PFIZER INC-2007067374

PATIENT
  Age: 82 Year
  Sex: Female

DRUGS (2)
  1. FRAGMIN [Suspect]
     Indication: PROPHYLAXIS
     Dosage: DAILY DOSE:14000I.U.
     Route: 058
     Dates: start: 20070725, end: 20070725
  2. PLAVIX [Concomitant]
     Dosage: DAILY DOSE:75MG-FREQ:DAILY

REACTIONS (4)
  - CATHETER SITE HAEMORRHAGE [None]
  - DEEP VEIN THROMBOSIS [None]
  - EPISTAXIS [None]
  - GASTROINTESTINAL HAEMORRHAGE [None]
